FAERS Safety Report 18427170 (Version 1)
Quarter: 2020Q4

REPORT INFORMATION
  Report Type: Report from Study
  Country: KR (occurrence: KR)
  Receive Date: 20201026
  Receipt Date: 20201026
  Transmission Date: 20210114
  Serious: Yes (Death, Hospitalization)
  Sender: FDA-Public Use
  Company Number: KR-JNJFOC-A-CH2018-177271

PATIENT
  Age: 48 Year
  Sex: Female
  Weight: 49.9 kg

DRUGS (11)
  1. TAZIME [Suspect]
     Active Substance: CEFTAZIDIME
     Indication: ANTIBIOTIC THERAPY
     Dosage: 2 G, QD
     Route: 042
  2. URETIN [Concomitant]
     Indication: PULMONARY ARTERIAL HYPERTENSION
     Dosage: 0.5 DF, QD
     Dates: start: 20180403, end: 20180828
  3. PANTOLOC [Concomitant]
     Active Substance: PANTOPRAZOLE SODIUM
     Dosage: 40 MG, QD
     Dates: start: 20160419, end: 20180922
  4. DICAMAX-D [Concomitant]
     Active Substance: CALCIUM CARBONATE\CHOLECALCIFEROL
     Dosage: 1 DF, QD
     Route: 048
     Dates: start: 20150227, end: 20180922
  5. DIGOSIN [Concomitant]
     Active Substance: DIGOXIN
     Indication: PULMONARY ARTERIAL HYPERTENSION
     Dosage: 0.5 DF, QD
     Route: 048
     Dates: start: 20180730, end: 20180922
  6. OXIKLORIN [Concomitant]
     Active Substance: HYDROXYCHLOROQUINE SULFATE
     Dosage: 300 MG, QD
     Route: 048
     Dates: start: 20180223, end: 20180922
  7. OPSUMIT [Suspect]
     Active Substance: MACITENTAN
     Indication: PULMONARY ARTERIAL HYPERTENSION
     Dosage: 10 MG, QD
     Route: 048
     Dates: start: 20180319, end: 20180922
  8. MYREPT [Concomitant]
     Active Substance: MYCOPHENOLATE MOFETIL
     Dosage: 500 MG, QD
     Route: 048
     Dates: start: 20180724, end: 20180922
  9. SOLONDO [Concomitant]
     Active Substance: PREDNISOLONE
     Dosage: 10 MG, QD
     Route: 048
     Dates: start: 20141002, end: 20180922
  10. NIFERON [Concomitant]
     Dosage: 1 DF, QD
     Route: 048
     Dates: start: 20141121, end: 20180724
  11. SYNTHROID [Concomitant]
     Active Substance: LEVOTHYROXINE SODIUM
     Dosage: 0.05 MG, QD
     Route: 048
     Dates: start: 20160406, end: 20180922

REACTIONS (11)
  - Nausea [Recovered/Resolved]
  - Alanine aminotransferase increased [Recovered/Resolved]
  - Gamma-glutamyltransferase increased [Unknown]
  - Wound secretion [Recovering/Resolving]
  - Vomiting [Recovered/Resolved]
  - Aspartate aminotransferase increased [Unknown]
  - Interstitial lung disease [Fatal]
  - Dyspnoea [Fatal]
  - Arthritis bacterial [Recovered/Resolved]
  - Abdominal pain upper [Recovered/Resolved]
  - Cardiac arrest [Fatal]

NARRATIVE: CASE EVENT DATE: 20180412
